FAERS Safety Report 6649205-X (Version None)
Quarter: 2010Q1

REPORT INFORMATION
  Report Type: 
  Country: None (occurrence: None)
  Receive Date: 20100324
  Receipt Date: 20100317
  Transmission Date: 20100710
  Serious: Yes (Life-Threatening)
  Sender: FDA-Public Use
  Company Number: B0642460A

PATIENT
  Sex: Male

DRUGS (9)
  1. AUGMENTIN [Suspect]
     Indication: PURULENT SYNOVITIS
     Dosage: 2.2G PER DAY
     Route: 042
     Dates: start: 20100208, end: 20100223
  2. NAPRILENE [Concomitant]
     Dosage: 20MG PER DAY
     Route: 048
     Dates: start: 20100208, end: 20100308
  3. DILTIAZEM [Concomitant]
     Dosage: 180MG PER DAY
     Route: 048
     Dates: start: 20100208, end: 20100308
  4. PRAVASELECT [Concomitant]
     Dosage: 20MG PER DAY
     Route: 048
     Dates: start: 20100208, end: 20100308
  5. MEPRAL [Concomitant]
     Dosage: 20MG PER DAY
     Route: 048
     Dates: start: 20100208, end: 20100308
  6. ENTEROGERMINA [Concomitant]
     Route: 048
  7. TACHIPIRINA [Concomitant]
     Dosage: 100MG PER DAY
     Dates: start: 20100208, end: 20100308
  8. DELORAZEPAM [Concomitant]
     Route: 048
     Dates: start: 20100208, end: 20100308
  9. SELEPARINA [Concomitant]
     Dosage: 1800IU PER DAY
     Route: 058

REACTIONS (2)
  - ANAPHYLACTIC SHOCK [None]
  - DYSPNOEA [None]
